FAERS Safety Report 7132881-5 (Version None)
Quarter: 2010Q4

REPORT INFORMATION
  Report Type: 
  Country: None (occurrence: None)
  Receive Date: 20101202
  Receipt Date: 20101122
  Transmission Date: 20110411
  Serious: Yes (Other)
  Sender: FDA-Public Use
  Company Number: US-PFIZER INC-HQWYE347702APR04

PATIENT
  Sex: Female
  Weight: 66 kg

DRUGS (48)
  1. PREMPRO [Suspect]
     Indication: HORMONE REPLACEMENT THERAPY
     Dosage: UNK
     Route: 048
     Dates: start: 19960424, end: 19960607
  2. PREMPRO [Suspect]
     Dosage: UNK
     Dates: start: 19960906, end: 19970306
  3. PREMPRO [Suspect]
     Dosage: UNK
     Dates: start: 19970929
  4. PREMPRO [Suspect]
     Dosage: UNK
     Dates: start: 19971203
  5. PREMPRO [Suspect]
     Dosage: UNK
     Dates: start: 19980629, end: 19980727
  6. PREMPRO [Suspect]
     Dosage: UNK
     Dates: start: 19990424, end: 19991004
  7. PREMPRO [Suspect]
     Dosage: UNK
     Dates: start: 20000524, end: 20020412
  8. PREMARIN [Suspect]
     Indication: HORMONE REPLACEMENT THERAPY
     Dosage: UNK
     Dates: start: 19910727, end: 19980123
  9. PREMARIN [Suspect]
     Indication: HOT FLUSH
  10. PREMARIN [Suspect]
     Indication: NIGHT SWEATS
  11. PREMARIN [Suspect]
     Indication: MOOD SWINGS
  12. PREMARIN [Suspect]
     Indication: VULVOVAGINAL DRYNESS
  13. PREMARIN [Suspect]
     Indication: VULVOVAGINAL PAIN
  14. PROVERA [Suspect]
     Indication: HORMONE REPLACEMENT THERAPY
     Dosage: UNK
     Dates: start: 19910627, end: 19910729
  15. PROVERA [Suspect]
     Indication: HOT FLUSH
     Dosage: UNK
     Dates: start: 19910913
  16. PROVERA [Suspect]
     Indication: NIGHT SWEATS
     Dosage: UNK
     Dates: start: 19911112, end: 19911213
  17. PROVERA [Suspect]
     Indication: MOOD SWINGS
     Dosage: UNK
     Dates: start: 19920430
  18. PROVERA [Suspect]
     Indication: VULVOVAGINAL DRYNESS
     Dosage: UNK
     Dates: start: 19920724, end: 19920828
  19. PROVERA [Suspect]
     Indication: VULVOVAGINAL PAIN
     Dosage: UNK
     Dates: start: 19921102
  20. PROVERA [Suspect]
     Dosage: UNK
     Dates: start: 19930331
  21. PROVERA [Suspect]
     Dosage: UNK
     Dates: start: 19930623
  22. PROVERA [Suspect]
     Dosage: UNK
     Dates: start: 19930820, end: 19930827
  23. PROVERA [Suspect]
     Dosage: UNK
     Dates: start: 19931015
  24. PROVERA [Suspect]
     Dosage: UNK
     Dates: start: 19931223
  25. PROVERA [Suspect]
     Dosage: UNK
     Dates: start: 19940519
  26. PROVERA [Suspect]
     Dosage: UNK
     Dates: start: 19940826, end: 19940927
  27. PROVERA [Suspect]
     Dosage: UNK
     Dates: start: 19950131
  28. PROVERA [Suspect]
     Dosage: UNK
     Dates: start: 19950419
  29. PROVERA [Suspect]
     Dosage: UNK
     Dates: start: 19950627
  30. PROVERA [Suspect]
     Dosage: UNK
     Dates: start: 19960805
  31. ESTROGENS [Suspect]
     Indication: HORMONE REPLACEMENT THERAPY
     Dosage: UNK
  32. ESTRADERM [Suspect]
     Indication: HORMONE REPLACEMENT THERAPY
     Dosage: UNK
     Dates: start: 19920430
  33. ESTRADERM [Suspect]
     Dosage: UNK
     Dates: start: 19930331
  34. ESTRADERM [Suspect]
     Dosage: UNK
     Dates: start: 19930623
  35. ESTRADERM [Suspect]
     Dosage: UNK
     Dates: start: 19930820
  36. ESTRADERM [Suspect]
     Dosage: UNK
     Dates: start: 19931015
  37. ESTRADERM [Suspect]
     Dosage: UNK
     Dates: start: 19940315
  38. ESTRADERM [Suspect]
     Dosage: UNK
     Dates: start: 19940826, end: 19940927
  39. ESTRADERM [Suspect]
     Dosage: UNK
     Dates: start: 19941129
  40. ESTRADERM [Suspect]
     Dosage: UNK
     Dates: start: 19950131
  41. ESTRADERM [Suspect]
     Dosage: UNK
     Dates: start: 19950627
  42. CYCRIN [Suspect]
     Indication: HORMONE REPLACEMENT THERAPY
     Dosage: UNK
  43. CYCRIN [Suspect]
     Indication: HOT FLUSH
  44. CYCRIN [Suspect]
     Indication: NIGHT SWEATS
  45. CYCRIN [Suspect]
     Indication: MOOD SWINGS
  46. CYCRIN [Suspect]
     Indication: VULVOVAGINAL DRYNESS
  47. CYCRIN [Suspect]
     Indication: VULVOVAGINAL PAIN
  48. MEDROXYPROGESTERONE [Suspect]
     Indication: HORMONE REPLACEMENT THERAPY
     Dosage: UNK

REACTIONS (3)
  - BLOOD PRESSURE INCREASED [None]
  - BREAST CANCER FEMALE [None]
  - CONDITION AGGRAVATED [None]
